FAERS Safety Report 7966460-4 (Version None)
Quarter: 2011Q4

REPORT INFORMATION
  Report Type: 
  Country: None (occurrence: None)
  Receive Date: 20111208
  Receipt Date: 20110930
  Transmission Date: 20120403
  Serious: Yes (Death)
  Sender: FDA-Public Use
  Company Number: JP-ROCHE-804407

PATIENT
  Sex: Female

DRUGS (7)
  1. FAMOTIDINE [Concomitant]
     Route: 048
  2. METHOTREXATE [Concomitant]
     Route: 048
     Dates: end: 20110831
  3. IDOMETHINE [Concomitant]
     Route: 062
     Dates: end: 20110831
  4. PREDNISOLONE [Concomitant]
     Dosage: 5 DOSES
     Route: 048
     Dates: end: 20110831
  5. ACTEMRA [Suspect]
     Indication: RHEUMATOID ARTHRITIS
     Dosage: DOSAGE IS UNCERTAIN
     Route: 041
     Dates: start: 20110128, end: 20110831
  6. ETODOLAC [Concomitant]
     Route: 048
     Dates: end: 20110831
  7. FOLIC ACID [Concomitant]
     Route: 048

REACTIONS (2)
  - HEAT ILLNESS [None]
  - DEATH [None]
